FAERS Safety Report 10531437 (Version 1)
Quarter: 2014Q4

REPORT INFORMATION
  Report Type: Spontaneous
  Country: IT (occurrence: IT)
  Receive Date: 20141021
  Receipt Date: 20141021
  Transmission Date: 20150529
  Serious: Yes (Hospitalization)
  Sender: FDA-Public Use
  Company Number: PHHY2014IT136418

PATIENT
  Age: 59 Year
  Sex: Male

DRUGS (5)
  1. VOLTAREN [Suspect]
     Active Substance: DICLOFENAC SODIUM
     Indication: MYALGIA
     Dosage: 1 POSOLOGIC UNIT, AS NEEDED
     Route: 030
     Dates: start: 20140929, end: 20141008
  2. TORA-DOL [Suspect]
     Active Substance: KETOROLAC TROMETHAMINE
     Indication: MYALGIA
     Dosage: 1 POSOLOGIC UNIT, DAILY
     Route: 048
     Dates: start: 20140929, end: 20141008
  3. LIXIDOL [Suspect]
     Active Substance: KETOROLAC TROMETHAMINE
     Indication: MYALGIA
     Dosage: 1 POSOLOGIC UNIT, DAILY
     Route: 048
     Dates: start: 20140929, end: 20141008
  4. CIPROXIN//CIPROFLOXACIN HYDROCHLORIDE [Interacting]
     Active Substance: CIPROFLOXACIN HYDROCHLORIDE
     Indication: LUNG INFECTION
     Dosage: 1 POSOLOGIC UNIT, DAILY
     Route: 048
     Dates: start: 20141001, end: 20141008
  5. AULIN [Suspect]
     Active Substance: NIMESULIDE
     Indication: MYALGIA
     Dosage: 1 POSOLOGIC UNIT, DAILY
     Route: 048
     Dates: start: 20140929, end: 20141008

REACTIONS (14)
  - Coma [Unknown]
  - Chronic obstructive pulmonary disease [None]
  - Motor dysfunction [None]
  - Lung infection [None]
  - Disease recurrence [None]
  - Respiratory failure [Unknown]
  - Pain [None]
  - Foaming at mouth [None]
  - Drug abuse [Unknown]
  - Drug interaction [Unknown]
  - Vomiting [Unknown]
  - Fall [None]
  - Asthenia [None]
  - Epilepsy [Unknown]

NARRATIVE: CASE EVENT DATE: 20141008
